FAERS Safety Report 9392126 (Version 5)
Quarter: 2013Q3

REPORT INFORMATION
  Report Type: Spontaneous
  Country: US (occurrence: US)
  Receive Date: 20130709
  Receipt Date: 20130819
  Transmission Date: 20140515
  Serious: Yes (Hospitalization)
  Sender: FDA-Public Use
  Company Number: US-GILEAD-2013-0078684

PATIENT
  Sex: Female

DRUGS (4)
  1. LETAIRIS [Suspect]
     Indication: PULMONARY HYPERTENSION
     Dosage: 5 MG, QD
     Route: 048
     Dates: start: 20120411
  2. LETAIRIS [Suspect]
     Indication: LUNG NEOPLASM MALIGNANT
  3. REMODULIN [Concomitant]
  4. ADCIRCA [Concomitant]

REACTIONS (2)
  - Lung neoplasm malignant [Unknown]
  - Pneumonia [Unknown]
